FAERS Safety Report 8614451-2 (Version None)
Quarter: 2012Q3

REPORT INFORMATION
  Report Type: 
  Country: None (occurrence: None)
  Receive Date: 20120823
  Receipt Date: 20120816
  Transmission Date: 20120928
  Serious: Yes (Other)
  Sender: FDA-Public Use
  Company Number: PHHY2012VE058535

PATIENT
  Sex: Female

DRUGS (8)
  1. ZOLEDRONOC ACID [Suspect]
     Dosage: 5 MG, ONCE A YEAR
     Route: 042
     Dates: start: 20100101
  2. GLUCOSAMINE [Concomitant]
     Dosage: UNK UKN, UNK
     Route: 048
     Dates: start: 20120101
  3. ZOLEDRONOC ACID [Suspect]
     Indication: OSTEOPOROSIS
     Dosage: 5 MG, ONCE A YEAR
     Route: 042
     Dates: start: 20070101
  4. ZOLEDRONOC ACID [Suspect]
     Dosage: 5 MG, ONCE A YEAR
     Route: 042
     Dates: start: 20090101
  5. MULTI-VITAMINS [Concomitant]
     Dosage: UNK UKN, UNK
     Route: 048
     Dates: start: 20120101
  6. ZOLEDRONOC ACID [Suspect]
     Dosage: 5 MG, ONCE A YEAR
     Route: 042
     Dates: start: 20080101
  7. ZOLEDRONOC ACID [Suspect]
     Dosage: 5 MG, ONCE A YEAR
     Route: 042
     Dates: start: 20120101
  8. ZOLEDRONOC ACID [Suspect]
     Dosage: 5 MG, ONCE A YEAR
     Route: 042
     Dates: start: 20110101

REACTIONS (12)
  - FALL [None]
  - OSTEOARTHRITIS [None]
  - ARTHRALGIA [None]
  - PAIN [None]
  - BONE PAIN [None]
  - MENISCUS LESION [None]
  - CHONDROPATHY [None]
  - ASTHENIA [None]
  - TENDON DISORDER [None]
  - CRYING [None]
  - INFLUENZA LIKE ILLNESS [None]
  - MALAISE [None]
